APPROVED DRUG PRODUCT: LEVALBUTEROL HYDROCHLORIDE
Active Ingredient: LEVALBUTEROL HYDROCHLORIDE
Strength: EQ 0.021% BASE
Dosage Form/Route: SOLUTION;INHALATION
Application: A203653 | Product #002 | TE Code: AN
Applicant: THE RITEDOSE CORP
Approved: Mar 22, 2016 | RLD: No | RS: No | Type: RX